FAERS Safety Report 9790706 (Version 3)
Quarter: 2014Q2

REPORT INFORMATION
  Report Type: Spontaneous
  Country: US (occurrence: US)
  Receive Date: 20131231
  Receipt Date: 20140526
  Transmission Date: 20141212
  Serious: Yes (Death)
  Sender: FDA-Public Use
  Company Number: US-PFIZER INC-2013371886

PATIENT
  Age: 52 Year
  Sex: Female

DRUGS (1)
  1. XALKORI [Suspect]
     Indication: LUNG NEOPLASM MALIGNANT
     Dosage: 250 MG, 2X/DAY
     Route: 048
     Dates: start: 20131003

REACTIONS (4)
  - Disease progression [Fatal]
  - Lung neoplasm malignant [Fatal]
  - Nausea [Recovered/Resolved]
  - Vomiting [Recovered/Resolved]
